FAERS Safety Report 10201942 (Version 2)
Quarter: 2014Q2

REPORT INFORMATION
  Report Type: Spontaneous
  Country: US (occurrence: US)
  Receive Date: 20140528
  Receipt Date: 20140528
  Transmission Date: 20141212
  Serious: No
  Sender: FDA-Public Use
  Company Number: US-BRISTOL-MYERS SQUIBB COMPANY-19620871

PATIENT
  Age: 53 Year
  Sex: Female
  Weight: 81.63 kg

DRUGS (5)
  1. ONGLYZA TABS 5 MG [Suspect]
  2. METFORMIN HCL [Suspect]
  3. INSULIN [Suspect]
  4. LISINOPRIL [Concomitant]
     Indication: HYPERTENSION
  5. PAXIL [Concomitant]
     Indication: DEPRESSION

REACTIONS (1)
  - Therapeutic response decreased [Unknown]
